FAERS Safety Report 19228385 (Version 1)
Quarter: 2021Q2

REPORT INFORMATION
  Report Type: Spontaneous
  Country: US (occurrence: US)
  Receive Date: 20210507
  Receipt Date: 20210507
  Transmission Date: 20210717
  Serious: No
  Sender: FDA-Public Use
  Company Number: US-ORGANON-O2105USA000089

PATIENT
  Sex: Female
  Weight: 83.91 kg

DRUGS (1)
  1. SINGULAIR [Suspect]
     Active Substance: MONTELUKAST SODIUM
     Indication: MIGRAINE
     Dosage: 10 MILLIGRAM, 2 TIMES A DAY (BID)

REACTIONS (1)
  - Product use in unapproved indication [Unknown]
